FAERS Safety Report 19954798 (Version 2)
Quarter: 2022Q2

REPORT INFORMATION
  Report Type: Report from Study
  Country: CA (occurrence: CA)
  Receive Date: 20211014
  Receipt Date: 20220531
  Transmission Date: 20220721
  Serious: Yes (Hospitalization)
  Sender: FDA-Public Use
  Company Number: CA-MYLANLABS-2021M1072062

PATIENT
  Age: 29 Year
  Sex: Male

DRUGS (17)
  1. CARBAMAZEPINE [Suspect]
     Active Substance: CARBAMAZEPINE
     Indication: Aggression
     Dosage: 500 MILLIGRAM, BID (EXTENDED RELEASE)
     Route: 048
  2. CARBAMAZEPINE [Suspect]
     Active Substance: CARBAMAZEPINE
     Indication: Agitation
  3. CARBAMAZEPINE [Suspect]
     Active Substance: CARBAMAZEPINE
     Indication: Behaviour disorder
  4. CARBAMAZEPINE [Suspect]
     Active Substance: CARBAMAZEPINE
     Indication: Epilepsy
  5. VALPROIC ACID [Suspect]
     Active Substance: VALPROIC ACID
     Indication: Epilepsy
     Dosage: 1250 MILLIGRAM, BID
     Route: 065
  6. VALPROIC ACID [Suspect]
     Active Substance: VALPROIC ACID
     Indication: Behaviour disorder
  7. VALPROIC ACID [Suspect]
     Active Substance: VALPROIC ACID
     Indication: Aggression
  8. VALPROIC ACID [Suspect]
     Active Substance: VALPROIC ACID
     Indication: Agitation
  9. ZOPICLONE [Suspect]
     Active Substance: ZOPICLONE
     Indication: Aggression
     Dosage: 15 MILLIGRAM, TID (THREE TIMES A DAY)
     Route: 065
  10. ZOPICLONE [Suspect]
     Active Substance: ZOPICLONE
     Dosage: 15 MILLIGRAM, QD (15 MG EVERY NIGHT AT BEDTIME)
     Route: 065
  11. LEVETIRACETAM [Suspect]
     Active Substance: LEVETIRACETAM
     Indication: Epilepsy
     Dosage: 750 MILLIGRAM, BID
     Route: 065
  12. LEVETIRACETAM [Suspect]
     Active Substance: LEVETIRACETAM
     Indication: Behaviour disorder
  13. LEVETIRACETAM [Suspect]
     Active Substance: LEVETIRACETAM
     Indication: Aggression
  14. LEVETIRACETAM [Suspect]
     Active Substance: LEVETIRACETAM
     Indication: Agitation
  15. QUETIAPINE [Concomitant]
     Active Substance: QUETIAPINE
     Indication: Aggression
     Dosage: 150 MILLIGRAM, QD (AT BEDTIME)
     Route: 065
  16. QUETIAPINE [Concomitant]
     Active Substance: QUETIAPINE
     Dosage: 200 MILLIGRAM, BID
     Route: 065
  17. CITALOPRAM [Concomitant]
     Active Substance: CITALOPRAM HYDROBROMIDE
     Indication: Aggression
     Dosage: 20 MILLIGRAM, QD
     Route: 065

REACTIONS (2)
  - Drug ineffective [Unknown]
  - Off label use [Unknown]
